FAERS Safety Report 10301931 (Version 1)
Quarter: 2014Q3

REPORT INFORMATION
  Report Type: Spontaneous
  Country: US (occurrence: None)
  Receive Date: 20140710
  Receipt Date: 20140710
  Transmission Date: 20150326
  Serious: Yes (Life-Threatening, Hospitalization)
  Sender: FDA-Public Use
  Company Number: None

PATIENT
  Age: 3 Year
  Sex: Male
  Weight: 12.5 kg

DRUGS (1)
  1. ONCASPAR [Suspect]
     Active Substance: PEGASPARGASE
     Indication: LEUKAEMIA
     Dosage: X1
     Route: 042
     Dates: start: 20140509

REACTIONS (6)
  - Infusion related reaction [None]
  - Anaphylactic reaction [None]
  - Cough [None]
  - Pruritus [None]
  - Lip swelling [None]
  - Erythema [None]

NARRATIVE: CASE EVENT DATE: 20140509
